FAERS Safety Report 20420814 (Version 1)
Quarter: 2022Q1

REPORT INFORMATION
  Report Type: Spontaneous
  Country: US (occurrence: None)
  Receive Date: 20220202
  Receipt Date: 20220202
  Transmission Date: 20220423
  Serious: Yes (Disabling)
  Sender: FDA-Public Use
  Company Number: None

PATIENT
  Age: 36 Year
  Sex: Female
  Weight: 85.5 kg

DRUGS (8)
  1. BUPRENORPHINE AND NALOXONE SUBLINGUAL FILM [Suspect]
     Active Substance: BUPRENORPHINE HYDROCHLORIDE\NALOXONE HYDROCHLORIDE
     Indication: Drug dependence
     Dosage: OTHER QUANTITY : 2 60;?FREQUENCY : TWICE A DAY;?
     Route: 060
     Dates: start: 20170101
  2. Sunoxonr [Concomitant]
  3. MAXALT [Concomitant]
     Active Substance: RIZATRIPTAN BENZOATE
  4. ALBUTEROL [Concomitant]
     Active Substance: ALBUTEROL
  5. B13 500mcg [Concomitant]
  6. COLLAGEN [Concomitant]
     Active Substance: COLLAGEN
  7. Immune vitamin [Concomitant]
  8. Sensitive toothpaste Flossing Fluoride [Concomitant]

REACTIONS (2)
  - Dental caries [None]
  - Tooth loss [None]

NARRATIVE: CASE EVENT DATE: 20200413
